FAERS Safety Report 24784019 (Version 2)
Quarter: 2025Q1

REPORT INFORMATION
  Report Type: Spontaneous
  Country: DE (occurrence: DE)
  Receive Date: 20241227
  Receipt Date: 20250103
  Transmission Date: 20250409
  Serious: Yes (Other)
  Sender: ABBVIE
  Company Number: DE-ACIS-20243579

PATIENT
  Sex: Male

DRUGS (6)
  1. URSODIOL [Suspect]
     Active Substance: URSODIOL
     Indication: Cystic fibrosis
     Route: 048
  2. DORNASE ALFA [Concomitant]
     Active Substance: DORNASE ALFA
     Indication: Cystic fibrosis
     Route: 055
  3. ALBUTEROL [Concomitant]
     Active Substance: ALBUTEROL
     Indication: Cystic fibrosis
     Route: 055
  4. PREDNISOLONE [Suspect]
     Active Substance: PREDNISOLONE
     Indication: Cystic fibrosis
     Route: 048
  5. COLISTIN [Concomitant]
     Active Substance: COLISTIN
     Indication: Cystic fibrosis
     Route: 055
  6. AZITHROMYCIN [Suspect]
     Active Substance: AZITHROMYCIN
     Indication: Cystic fibrosis
     Route: 048

REACTIONS (3)
  - Pseudomonas infection [Recovered/Resolved]
  - Weight gain poor [Recovered/Resolved]
  - Product use in unapproved indication [Unknown]
